FAERS Safety Report 7564930-4 (Version None)
Quarter: 2011Q2

REPORT INFORMATION
  Report Type: 
  Country: None (occurrence: None)
  Receive Date: 20110622
  Receipt Date: 20110310
  Transmission Date: 20111010
  Serious: Yes (Death)
  Sender: FDA-Public Use
  Company Number: US-MYLANLABS-2011S1003716

PATIENT
  Age: 54 Year
  Sex: Female

DRUGS (6)
  1. COMBIVENT [Concomitant]
  2. TRAZODONE HCL [Concomitant]
  3. CITALOPRAM HYDROBROMIDE [Concomitant]
  4. CLOZAPINE [Suspect]
     Route: 048
  5. CLOZAPINE [Suspect]
     Indication: SCHIZOPHRENIA
     Route: 048
     Dates: start: 19950101
  6. CLOZAPINE [Suspect]
     Route: 048

REACTIONS (1)
  - RESPIRATORY FAILURE [None]
